FAERS Safety Report 4588748-X (Version None)
Quarter: 2005Q1

REPORT INFORMATION
  Report Type: 
  Country: None (occurrence: None)
  Receive Date: 20050222
  Receipt Date: 20041109
  Transmission Date: 20050727
  Serious: Yes (Death)
  Sender: FDA-Public Use
  Company Number: JP-BRISTOL-MYERS SQUIBB COMPANY-12761771

PATIENT
  Age: 69 Year
  Sex: Male

DRUGS (6)
  1. TAXOL [Suspect]
     Indication: PANCREATIC CARCINOMA
     Route: 041
     Dates: start: 20030430, end: 20030430
  2. MS CONTIN [Concomitant]
     Route: 048
     Dates: start: 20030428, end: 20030508
  3. PREDONINE [Concomitant]
     Route: 048
     Dates: start: 20030428, end: 20030508
  4. GASTER [Concomitant]
     Route: 048
     Dates: start: 20030428, end: 20030508
  5. MORPHINE [Concomitant]
     Route: 048
     Dates: start: 20030428, end: 20030508
  6. LENDORMIN [Concomitant]
     Route: 048
     Dates: start: 20030428, end: 20030508

REACTIONS (1)
  - INTERSTITIAL LUNG DISEASE [None]
